FAERS Safety Report 16583083 (Version 6)
Quarter: 2021Q3

REPORT INFORMATION
  Report Type: Spontaneous
  Country: US (occurrence: US)
  Receive Date: 20190717
  Receipt Date: 20210706
  Transmission Date: 20211014
  Serious: Yes (Other)
  Sender: FDA-Public Use
  Company Number: US-PFIZER INC-2016523884

PATIENT
  Age: 62 Year
  Sex: Female
  Weight: 104 kg

DRUGS (17)
  1. PREDNISONE. [Concomitant]
     Active Substance: PREDNISONE
     Indication: RHEUMATOID ARTHRITIS
     Dosage: 5 MG, DAILY
  2. VOLTAREN [Concomitant]
     Active Substance: DICLOFENAC SODIUM
     Dosage: 4 G, 4X/DAY
     Route: 061
  3. ELAVIL [Concomitant]
     Active Substance: AMITRIPTYLINE HYDROCHLORIDE
     Dosage: 25 MG, 1X/DAY, (NIGHTLY)
     Route: 048
  4. DELTASONE [Concomitant]
     Active Substance: PREDNISONE
     Dosage: 5 MG, DAILY, [TAKE 1 TABLET (5 MG TOTAL) BY MOUTH DAILY]
     Route: 048
  5. FOLVITE [Concomitant]
     Active Substance: FOLIC ACID
     Dosage: 2 MG, DAILY, [TAKE 2 TABLETS (2,000 MCG TOTAL)]
     Route: 048
  6. MOBIC [Concomitant]
     Active Substance: MELOXICAM
     Dosage: 15 MG, DAILY
     Route: 048
  7. METHOTREXATE. [Concomitant]
     Active Substance: METHOTREXATE
     Indication: RHEUMATOID ARTHRITIS
     Dosage: 25 MG, WEEKLY (10 TABLETS (25 MG TOTAL) BY MOUTH ONCE A WEEK)
     Route: 048
  8. MAXIMUM D3 [Concomitant]
     Active Substance: CHOLECALCIFEROL
     Dosage: 1 DF (1 CAPSULE BY MOUTH 4 (FOUR) TIMES A WEEK)
     Route: 048
  9. LYRICA [Suspect]
     Active Substance: PREGABALIN
     Indication: RHEUMATOID ARTHRITIS
     Dosage: 100 MG, 3X/DAY
     Route: 048
     Dates: start: 2014
  10. MAXIMUM D3 [Concomitant]
     Active Substance: CHOLECALCIFEROL
     Indication: RHEUMATOID ARTHRITIS
     Dosage: 10000 IU (10,000 UNIT 3 TIMES A WEEK)
     Route: 048
  11. TYLENOL [Concomitant]
     Active Substance: ACETAMINOPHEN
     Indication: PAIN
     Dosage: 650 MG, AS NEEDED, (EVERY 8 (EIGHT) HOURS AS NEEDED)
     Route: 048
  12. DIOVAN [Concomitant]
     Active Substance: VALSARTAN
     Dosage: 160 MG, DAILY
     Route: 048
  13. LYRICA [Suspect]
     Active Substance: PREGABALIN
     Indication: NEUROPATHY PERIPHERAL
     Dosage: 100 MG, 2X/DAY
     Route: 048
  14. ULTRAM [Concomitant]
     Active Substance: TRAMADOL HYDROCHLORIDE
     Indication: PAIN
     Dosage: 50 MG, AS NEEDED (50 MG EVERY 6 (SIX) HOURS AS NEEDED)
     Route: 048
  15. LOVAZA [Concomitant]
     Active Substance: OMEGA-3-ACID ETHYL ESTERS
     Dosage: 2 G, 2X/DAY
     Route: 048
  16. GLYCOLAX [Concomitant]
     Active Substance: POLYETHYLENE GLYCOL 3350
     Dosage: UNK (17 GRAM/DOSE POWDER)
  17. DELTASONE [Concomitant]
     Active Substance: PREDNISONE
     Dosage: 4 MG, DAILY, [TAKE 4 TABLETS (4 MG TOTAL)]
     Route: 048

REACTIONS (5)
  - Drug dependence [Unknown]
  - Nervousness [Unknown]
  - Panic disorder [Unknown]
  - Tremor [Unknown]
  - Dysphonia [Unknown]

NARRATIVE: CASE EVENT DATE: 20210623
